FAERS Safety Report 4280410-6 (Version None)
Quarter: 2004Q1

REPORT INFORMATION
  Report Type: 
  Country: None (occurrence: None)
  Receive Date: 20040122
  Receipt Date: 20030814
  Transmission Date: 20041129
  Serious: Yes (Hospitalization, Congenital Anomaly, Other)
  Sender: FDA-Public Use
  Company Number: M2004.6763

PATIENT
  Age: 40 Year
  Sex: Female
  Weight: 75.5 kg

DRUGS (2)
  1. ATENOLOL 75MG, UNSPECIFIED MANUFACTURER [Suspect]
     Indication: HYPERTENSION
     Dosage: 75 MG DAILY, ORAL  SEVERAL YEARS
     Route: 048
  2. VALSARTAN [Concomitant]

REACTIONS (7)
  - COMPLICATIONS OF MATERNAL EXPOSURE TO THERAPEUTIC DRUGS [None]
  - INTRA-UTERINE DEATH [None]
  - KIDNEY MALFORMATION [None]
  - MATERNAL DRUGS AFFECTING FOETUS [None]
  - OLIGOHYDRAMNIOS [None]
  - PLACENTAL DISORDER [None]
  - PULMONARY HYPOPLASIA [None]
